FAERS Safety Report 4273092-0 (Version None)
Quarter: 2004Q1

REPORT INFORMATION
  Report Type: 
  Country: None (occurrence: None)
  Receive Date: 20040116
  Receipt Date: 20020208
  Transmission Date: 20041129
  Serious: Yes (Other)
  Sender: FDA-Public Use
  Company Number: US-BRISTOL-MYERS SQUIBB COMPANY-11714144

PATIENT
  Age: 56 Year
  Sex: Female

DRUGS (5)
  1. GATIFLOXACIN [Suspect]
     Dosage: MOST RECENT DOSE PRIOR TO EVENT WAS ON 23-JAN-2002.
     Route: 048
     Dates: start: 20011206
  2. ATORVASTATIN [Suspect]
     Dosage: MOST RECENT DOSE PRIOR TO EVENT WAS ON 23-JAN-2002.
     Route: 048
     Dates: start: 20011121
  3. TOPROL-XL [Concomitant]
     Route: 048
  4. PROTONIX [Concomitant]
     Route: 048
  5. ASPIRIN [Concomitant]
     Route: 048

REACTIONS (1)
  - DIABETES MELLITUS NON-INSULIN-DEPENDENT [None]
